FAERS Safety Report 18832420 (Version 2)
Quarter: 2021Q1

REPORT INFORMATION
  Report Type: Spontaneous
  Country: US (occurrence: US)
  Receive Date: 20210201
  Receipt Date: 20210226
  Transmission Date: 20210419
  Serious: No
  Sender: FDA-Public Use
  Company Number: US-ASTRAZENECA-2021A003768

PATIENT
  Age: 3292 Week
  Sex: Male

DRUGS (1)
  1. SYMBICORT [Suspect]
     Active Substance: BUDESONIDE\FORMOTEROL FUMARATE DIHYDRATE
     Indication: CHRONIC OBSTRUCTIVE PULMONARY DISEASE
     Dosage: 160/4.5 MCG 2 PUFFS BID
     Route: 055
     Dates: start: 201809

REACTIONS (4)
  - Device malfunction [Unknown]
  - Hypoacusis [Unknown]
  - Incorrect dose administered by device [Not Recovered/Not Resolved]
  - Intentional device misuse [Unknown]

NARRATIVE: CASE EVENT DATE: 20201229
